FAERS Safety Report 8833116 (Version 3)
Quarter: 2012Q4

REPORT INFORMATION
  Report Type: 
  Country: CA (occurrence: CA)
  Receive Date: 20121010
  Receipt Date: 20121105
  Transmission Date: 20130627
  Serious: Yes (Hospitalization, Other)
  Sender: FDA-Public Use
  Company Number: CA-JNJFOC-20121002681

PATIENT
  Age: 17 Year
  Sex: Female

DRUGS (1)
  1. EVRA [Suspect]
     Indication: PRODUCT USED FOR UNKNOWN INDICATION
     Dosage: for approximately 14-15 months
     Route: 062

REACTIONS (1)
  - Pancreatitis [Recovering/Resolving]
